FAERS Safety Report 16175934 (Version 1)
Quarter: 2019Q2

REPORT INFORMATION
  Report Type: Spontaneous
  Country: IT (occurrence: IT)
  Receive Date: 20190409
  Receipt Date: 20190409
  Transmission Date: 20190711
  Serious: Yes (Other)
  Sender: FDA-Public Use
  Company Number: IT-TEVA-2019-IT-1034458

PATIENT
  Age: 91 Year
  Sex: Female

DRUGS (4)
  1. QUETIAPINA ACCORD [Concomitant]
     Active Substance: QUETIAPINE
  2. ENALAPRIL [Suspect]
     Active Substance: ENALAPRIL
     Indication: HYPERTENSION
     Dosage: 5 MILLIGRAM DAILY;
     Route: 048
     Dates: start: 20180930
  3. CARDICOR [Concomitant]
     Active Substance: BISOPROLOL
  4. SEQUACOR 1,25 MG COMPRESSE RIVESTITE CON FILM [Suspect]
     Active Substance: BISOPROLOL FUMARATE
     Indication: HYPERTENSION
     Dosage: .65 MILLIGRAM DAILY;
     Route: 048
     Dates: start: 20180930

REACTIONS (2)
  - Syncope [Recovering/Resolving]
  - Blood pressure decreased [Recovering/Resolving]

NARRATIVE: CASE EVENT DATE: 20181124
